FAERS Safety Report 18522187 (Version 3)
Quarter: 2020Q4

REPORT INFORMATION
  Report Type: Other
  Country: JP (occurrence: JP)
  Receive Date: 20201119
  Receipt Date: 20201223
  Transmission Date: 20210114
  Serious: Yes (Other)
  Sender: FDA-Public Use
  Company Number: JP-SUNOVION-2020DSP014561

PATIENT
  Age: 51 Year
  Sex: Female

DRUGS (2)
  1. LATUDA [Suspect]
     Active Substance: LURASIDONE HYDROCHLORIDE
     Indication: HALLUCINATION, AUDITORY
     Dosage: 40 MG, QD
     Route: 048
     Dates: start: 20200619, end: 20200910
  2. CONTOMIN [Concomitant]
     Active Substance: CHLORPROMAZINE
     Indication: HALLUCINATION, AUDITORY
     Dosage: 25 MG, QD
     Route: 048
     Dates: start: 20200626, end: 20201126

REACTIONS (1)
  - Hallucination, auditory [Unknown]

NARRATIVE: CASE EVENT DATE: 202005
